FAERS Safety Report 13197497 (Version 1)
Quarter: 2017Q1

REPORT INFORMATION
  Report Type: Spontaneous
  Country: US (occurrence: US)
  Receive Date: 20170208
  Receipt Date: 20170208
  Transmission Date: 20170428
  Serious: No
  Sender: FDA-Public Use
  Company Number: US-PERRIGO-16US020084

PATIENT
  Age: 5 Month
  Sex: Male
  Weight: 9.7 kg

DRUGS (1)
  1. IBUPROFEN. [Suspect]
     Active Substance: IBUPROFEN
     Indication: TEETHING
     Dosage: 100 MG, QD, PRN
     Route: 048
     Dates: start: 201606, end: 20160912

REACTIONS (2)
  - Incorrect dose administered [Recovered/Resolved]
  - Expired product administered [Recovered/Resolved]

NARRATIVE: CASE EVENT DATE: 201606
